FAERS Safety Report 8829177 (Version 1)
Quarter: 2012Q4

REPORT INFORMATION
  Report Type: Spontaneous
  Country: US (occurrence: None)
  Receive Date: 20121005
  Receipt Date: 20121005
  Transmission Date: 20130627
  Serious: Yes (Other)
  Sender: FDA-Public Use
  Company Number: None

PATIENT
  Age: 29 Year
  Sex: Female
  Weight: 61.69 kg

DRUGS (3)
  1. BUPROPION [Suspect]
     Indication: DEPRESSION
     Route: 048
     Dates: start: 201203
  2. BUPROPION [Suspect]
     Indication: ADHD
     Route: 048
     Dates: start: 201203
  3. WELLBUTRIN XL [Suspect]
     Indication: SMOKING CESSATION THERAPY
     Dates: start: 201205

REACTIONS (14)
  - Nausea [None]
  - Tinnitus [None]
  - Pyrexia [None]
  - Hallucination [None]
  - Hair growth abnormal [None]
  - Weight increased [None]
  - Palpitations [None]
  - Ischaemic stroke [None]
  - Hypoaesthesia [None]
  - Paraesthesia [None]
  - Headache [None]
  - Blood pressure increased [None]
  - Unevaluable event [None]
  - Seizure like phenomena [None]
